FAERS Safety Report 8532997-2 (Version None)
Quarter: 2012Q3

REPORT INFORMATION
  Report Type: 
  Country: None (occurrence: None)
  Receive Date: 20120724
  Receipt Date: 20120718
  Transmission Date: 20120928
  Serious: Yes (Hospitalization)
  Sender: FDA-Public Use
  Company Number: AU-JNJFOC-20120408680

PATIENT
  Sex: Male

DRUGS (6)
  1. SULFASALAZINE [Concomitant]
     Route: 065
  2. SULFASALAZINE [Concomitant]
     Dosage: 3 TABLETS BD
     Route: 065
  3. IMURAN [Concomitant]
     Dosage: DOSE REPORTED AS ^2 TABS^ DAILY
  4. IMURAN [Concomitant]
     Dosage: 3 TABLETS DAILY
  5. REMICADE [Suspect]
     Indication: CROHN'S DISEASE
     Route: 042
     Dates: start: 20120224
  6. REMICADE [Suspect]
     Route: 042
     Dates: start: 20090101

REACTIONS (5)
  - ACNE [None]
  - DRUG RESISTANCE [None]
  - ARTHRALGIA [None]
  - CELLULITIS [None]
  - PAIN IN EXTREMITY [None]
